FAERS Safety Report 18966759 (Version 1)
Quarter: 2021Q1

REPORT INFORMATION
  Report Type: Spontaneous
  Country: GB (occurrence: GB)
  Receive Date: 20210303
  Receipt Date: 20210303
  Transmission Date: 20210420
  Serious: Yes (Other)
  Sender: FDA-Public Use
  Company Number: GB-TEVA-2021-GB-1883594

PATIENT
  Age: 26 Year
  Sex: Female
  Weight: 62 kg

DRUGS (9)
  1. FLUCONAZOLE. [Suspect]
     Active Substance: FLUCONAZOLE
     Indication: CANDIDA INFECTION
     Dosage: 150 MG
     Route: 048
     Dates: start: 20210206, end: 20210206
  2. AMITRIPTYLINE [Concomitant]
     Active Substance: AMITRIPTYLINE
  3. FOLIC ACID. [Concomitant]
     Active Substance: FOLIC ACID
  4. ACICLOVIR [Concomitant]
     Active Substance: ACYCLOVIR
  5. ADVIL [Concomitant]
     Active Substance: IBUPROFEN
  6. METOJECT [Concomitant]
     Active Substance: METHOTREXATE SODIUM
     Dosage: 10 MG
  7. PARACETAMOL [Concomitant]
     Active Substance: ACETAMINOPHEN
  8. COCODAMOL [Concomitant]
     Active Substance: ACETAMINOPHEN\CODEINE PHOSPHATE
  9. RIGEVIDON [Concomitant]

REACTIONS (5)
  - Rash pruritic [Unknown]
  - Blister [Unknown]
  - Urticaria chronic [Unknown]
  - Pain [Unknown]
  - Fixed eruption [Recovering/Resolving]

NARRATIVE: CASE EVENT DATE: 20210206
